FAERS Safety Report 8173420-X (Version None)
Quarter: 2012Q1

REPORT INFORMATION
  Report Type: 
  Country: None (occurrence: None)
  Receive Date: 20120229
  Receipt Date: 20120222
  Transmission Date: 20120608
  Serious: Yes (Hospitalization)
  Sender: FDA-Public Use
  Company Number: US-BAYER-2012-007406

PATIENT
  Age: 73 Year
  Sex: Male
  Weight: 84.354 kg

DRUGS (18)
  1. SORAFENIB (RAF KINASE INHIBITOR) [Suspect]
     Dosage: 600 MG DAILY, CYCLE 22
     Route: 048
     Dates: start: 20120112, end: 20120119
  2. POTASSIUM PHOSPHATES [Concomitant]
     Indication: SUPPLEMENTATION THERAPY
     Dosage: TOTAL DAILY DOSE: 1000MG
     Route: 048
     Dates: start: 20110508
  3. LEVOTHYROXINE SODIUM [Concomitant]
     Indication: HYPOTHYROIDISM
     Dosage: 0.015 MG, QD
     Dates: start: 20070101
  4. IMODIUM [Concomitant]
     Indication: DIARRHOEA
     Dosage: 2 MG, QD
     Dates: start: 20110228
  5. DIOVAN [Concomitant]
     Indication: HYPERTENSION
     Dosage: 160-25 MG QD
     Route: 048
     Dates: start: 19950101
  6. SORAFENIB (RAF KINASE INHIBITOR) [Suspect]
     Indication: THYROID CANCER
     Dosage: UNK
     Dates: start: 20111002
  7. PLACEBO [Suspect]
     Indication: THYROID CANCER
     Dosage: UNK
     Dates: end: 20111002
  8. DOXAZOSIN [Concomitant]
     Indication: BENIGN PROSTATIC HYPERPLASIA
     Dosage: 8 MG, UNK
     Route: 048
     Dates: start: 19940101
  9. CALCIUM W/VITAMIN D NOS [Concomitant]
     Indication: HYPOCALCAEMIA
  10. LOVAZA [Concomitant]
     Indication: SUPPLEMENTATION THERAPY
     Dosage: 2000 MG, QD
     Route: 048
     Dates: start: 19800101
  11. TESTOSTERONE [Concomitant]
     Indication: ORGANIC ERECTILE DYSFUNCTION
     Dosage: TOTAL DAILY DOSE: 7GMS
     Route: 061
     Dates: start: 20050101
  12. ANTIBIOTICS [Concomitant]
     Indication: ANTIBIOTIC PROPHYLAXIS
     Dosage: UNK
     Dates: start: 20120119
  13. SORAFENIB (RAF KINASE INHIBITOR) [Suspect]
     Dosage: TOTAL DAILY DOSE: 600 MG
     Route: 048
     Dates: start: 20120125
  14. CALCIUM W/VITAMIN D NOS [Concomitant]
     Indication: SUPPLEMENTATION THERAPY
     Dosage: 2 TABS DAILY (500MG - 400MG UNIT)
     Dates: start: 20080601
  15. MULTI-VITAMIN [Concomitant]
     Indication: SUPPLEMENTATION THERAPY
     Dosage: DAILY DOSE 1 TABLET
     Dates: start: 19710101
  16. PRILOSEC [Concomitant]
     Indication: GASTROOESOPHAGEAL REFLUX DISEASE
     Dosage: UNK, PRN
     Route: 048
     Dates: start: 20090101
  17. ASPIRIN [Concomitant]
     Indication: SUPPLEMENTATION THERAPY
     Dosage: 81 MG, QD
     Dates: start: 20000101
  18. SAW PALMETTO [Concomitant]
     Indication: SUPPLEMENTATION THERAPY
     Dosage: TOTAL DAILY DOSE: 1000MG
     Route: 048
     Dates: start: 19950101

REACTIONS (1)
  - APPENDICITIS PERFORATED [None]
